FAERS Safety Report 8406998 (Version 5)
Quarter: 2013Q3

REPORT INFORMATION
  Report Type: Spontaneous
  Country: JP (occurrence: JP)
  Receive Date: 20120215
  Receipt Date: 20130805
  Transmission Date: 20140515
  Serious: Yes (Death, Other)
  Sender: FDA-Public Use
  Company Number: JP-GLAXOSMITHKLINE-B0781416A

PATIENT
  Age: 45 Year
  Sex: Female
  Weight: 59 kg

DRUGS (4)
  1. HYCAMTIN [Suspect]
     Indication: OVARIAN CANCER
     Dosage: 1.25MGM2 PER DAY
     Route: 042
     Dates: start: 20120116, end: 20120120
  2. NASEA [Concomitant]
     Indication: PROPHYLAXIS OF NAUSEA AND VOMITING
     Dosage: .3MG PER DAY
     Route: 042
     Dates: start: 20120116, end: 20120120
  3. DEXAMETHASONE SODIUM PHOSPHATE [Concomitant]
     Indication: PROPHYLAXIS OF NAUSEA AND VOMITING
     Dosage: 6.6MG PER DAY
     Route: 065
     Dates: start: 20120116, end: 20120120
  4. BLOOD TRANSFUSION [Concomitant]
     Route: 065
     Dates: start: 20120123, end: 20120202

REACTIONS (3)
  - Disseminated intravascular coagulation [Fatal]
  - Febrile neutropenia [Recovered/Resolved]
  - Platelet count decreased [Recovered/Resolved]
